FAERS Safety Report 13667918 (Version 1)
Quarter: 2017Q2

REPORT INFORMATION
  Report Type: Report from Study
  Country: DE (occurrence: DE)
  Receive Date: 20170620
  Receipt Date: 20170620
  Transmission Date: 20170830
  Serious: Yes (Hospitalization)
  Sender: FDA-Public Use
  Company Number: DE-ROCHE-1950847

PATIENT
  Age: 68 Year
  Sex: Male
  Weight: 77 kg

DRUGS (3)
  1. VENETOCLAX [Suspect]
     Active Substance: VENETOCLAX
     Indication: CHRONIC LYMPHOCYTIC LEUKAEMIA
     Dosage: MOST RECENT DOSE OF VENETOCLAX (400 MG) PRIOR TO THE EVENT 12/JUN/2017?20 MG (2 TABLET AT 10 MG, CYC
     Route: 048
     Dates: start: 20170201
  2. OBINUTUZUMAB [Suspect]
     Active Substance: OBINUTUZUMAB
     Indication: CHRONIC LYMPHOCYTIC LEUKAEMIA
     Dosage: MOST RECENT DOSE OF OBINUTUZUMAB (1000 MG) PRIOR TO THE EVENT 30/MAY/2017?CYCLE 1: 100 MG, D1; 900 M
     Route: 042
     Dates: start: 20170201
  3. IBRUTINIB [Suspect]
     Active Substance: IBRUTINIB
     Indication: CHRONIC LYMPHOCYTIC LEUKAEMIA
     Dosage: MOST RECENT DOSE OF IBRUTINIB(420MG) PRIOR TO THE EVENT 12/JUN/2017?CYCLES 1 TO 12: 420 MG, D1-28, Q
     Route: 048
     Dates: start: 20170201

REACTIONS (1)
  - Cerebrovascular accident [Not Recovered/Not Resolved]

NARRATIVE: CASE EVENT DATE: 20170612
